FAERS Safety Report 8802550 (Version 1)
Quarter: 2012Q4

REPORT INFORMATION
  Report Type: 
  Country: US (occurrence: US)
  Receive Date: 20120921
  Receipt Date: 20120921
  Transmission Date: 20130627
  Serious: No
  Sender: FDA-Public Use
  Company Number: US-ASTRAZENECA-2012SE70141

PATIENT
  Age: 64 Year
  Sex: Female
  Weight: 49.9 kg

DRUGS (6)
  1. PULMICORT FLEXHALER [Suspect]
     Indication: OBSTRUCTIVE AIRWAYS DISORDER
     Dosage: 180MCG, TWO PUFFS BID
     Route: 055
  2. METOPROLOL [Suspect]
     Indication: HYPERTENSION
     Route: 048
  3. HCTZ [Concomitant]
     Indication: HYPERTENSION
     Route: 048
  4. KLOR-CON [Concomitant]
     Indication: DIURETIC THERAPY
     Route: 048
  5. TRAMADOL [Concomitant]
     Indication: PAIN
     Route: 048
  6. LORAZEPAM [Concomitant]
     Route: 048

REACTIONS (6)
  - Bronchial hyperreactivity [Unknown]
  - Bone pain [Unknown]
  - Bone loss [Unknown]
  - Intentional drug misuse [Unknown]
  - Expired drug administered [Unknown]
  - Off label use [Unknown]
